FAERS Safety Report 7582227-3 (Version None)
Quarter: 2011Q2

REPORT INFORMATION
  Report Type: 
  Country: None (occurrence: None)
  Receive Date: 20110622
  Receipt Date: 20110607
  Transmission Date: 20111010
  Serious: Yes (Hospitalization, Other)
  Sender: FDA-Public Use
  Company Number: 2011MA006908

PATIENT
  Age: 26 Year
  Sex: Female

DRUGS (1)
  1. PROPRANOLOL HCL AND HYDROCHLOROTHIAZIDE [Suspect]
     Indication: OVERDOSE
     Dosage: 3600 MG; 1X

REACTIONS (13)
  - JOINT DISLOCATION [None]
  - TOXICITY TO VARIOUS AGENTS [None]
  - BLOOD SODIUM DECREASED [None]
  - BLOOD CALCIUM DECREASED [None]
  - OVERDOSE [None]
  - METABOLIC ACIDOSIS [None]
  - PULSE PRESSURE DECREASED [None]
  - BRADYCARDIA [None]
  - PERIPHERAL COLDNESS [None]
  - BLOOD POTASSIUM DECREASED [None]
  - SHOCK [None]
  - SOMNOLENCE [None]
  - CYANOSIS [None]
